FAERS Safety Report 14771433 (Version 1)
Quarter: 2018Q2

REPORT INFORMATION
  Report Type: Spontaneous
  Country: US (occurrence: US)
  Receive Date: 20180417
  Receipt Date: 20180417
  Transmission Date: 20180711
  Serious: No
  Sender: FDA-Public Use
  Company Number: US-ALLERGAN-1715095US

PATIENT
  Sex: Female

DRUGS (1)
  1. LATISSE [Suspect]
     Active Substance: BIMATOPROST
     Indication: GROWTH OF EYELASHES
     Dosage: 2 GTT, QHS
     Route: 061
     Dates: end: 20170404

REACTIONS (4)
  - Blepharospasm [Recovered/Resolved]
  - Erythema of eyelid [Recovered/Resolved]
  - Wrong technique in product usage process [Unknown]
  - Dry eye [Recovered/Resolved]
